FAERS Safety Report 22151003 (Version 1)
Quarter: 2023Q1

REPORT INFORMATION
  Report Type: Spontaneous
  Country: US (occurrence: None)
  Receive Date: 20230328
  Receipt Date: 20230328
  Transmission Date: 20230418
  Serious: No
  Sender: FDA-Public Use
  Company Number: None

PATIENT
  Age: 10 Year
  Sex: Male

DRUGS (1)
  1. TADALAFIL [Suspect]
     Active Substance: TADALAFIL
     Dosage: FREQUENCY : DAILY;?
     Route: 048

REACTIONS (4)
  - Middle insomnia [None]
  - Priapism [None]
  - Therapy interrupted [None]
  - Therapy change [None]

NARRATIVE: CASE EVENT DATE: 20230324
